FAERS Safety Report 25545006 (Version 1)
Quarter: 2025Q3

REPORT INFORMATION
  Report Type: Spontaneous
  Country: IL (occurrence: None)
  Receive Date: 20250711
  Receipt Date: 20250711
  Transmission Date: 20251021
  Serious: Yes (Death, Other)
  Sender: INCYTE
  Company Number: IL-INCYTE CORPORATION-2025IN007565

PATIENT
  Age: 33 Year

DRUGS (1)
  1. NIKTIMVO [Suspect]
     Active Substance: AXATILIMAB-CSFR
     Indication: Graft versus host disease in liver
     Route: 065

REACTIONS (3)
  - Death [Fatal]
  - Hepatic failure [Not Recovered/Not Resolved]
  - Therapy non-responder [Not Recovered/Not Resolved]
